FAERS Safety Report 5167179-8 (Version None)
Quarter: 2006Q4

REPORT INFORMATION
  Report Type: 
  Country: None (occurrence: None)
  Receive Date: 20061130
  Receipt Date: 20061117
  Transmission Date: 20070319
  Serious: Yes (Hospitalization, Other)
  Sender: FDA-Public Use
  Company Number: 15197

PATIENT
  Age: 50 Year
  Sex: Male

DRUGS (1)
  1. ACYCLOVIR [Suspect]
     Indication: HERPES ZOSTER
     Dosage: 4000  MG QD

REACTIONS (14)
  - AGITATION [None]
  - BLOOD PRESSURE SYSTOLIC INCREASED [None]
  - DISORIENTATION [None]
  - DRUG LEVEL DECREASED [None]
  - FATIGUE [None]
  - HAEMODIALYSIS [None]
  - HEADACHE [None]
  - LETHARGY [None]
  - NEUROTOXICITY [None]
  - OVERDOSE [None]
  - PAIN [None]
  - RASH [None]
  - RESTLESSNESS [None]
  - SPEECH DISORDER [None]
